FAERS Safety Report 9274889 (Version 2)
Quarter: 2013Q4

REPORT INFORMATION
  Report Type: Report from Study
  Country: JP (occurrence: JP)
  Receive Date: 20130507
  Receipt Date: 20131122
  Transmission Date: 20140711
  Serious: Yes (Death, Life-Threatening, Hospitalization)
  Sender: FDA-Public Use
  Company Number: JP-009507513-1305JPN002520

PATIENT
  Age: 65 Year
  Sex: Male

DRUGS (8)
  1. ZOLINZA CAPSULES 100MG [Suspect]
     Indication: MYCOSIS FUNGOIDES
     Dosage: 400 MG, QD
     Route: 048
     Dates: start: 20121119, end: 20121120
  2. ZOLINZA CAPSULES 100MG [Suspect]
     Dosage: 300 MG, QD
     Route: 048
     Dates: start: 20121126, end: 20130110
  3. LOXONIN [Suspect]
     Indication: MYCOSIS FUNGOIDES
     Dosage: 60 MG, TID
     Route: 048
     Dates: start: 20121210, end: 20121228
  4. LOXONIN [Suspect]
     Indication: PAIN
     Dosage: 60 MG, UNK
     Route: 048
     Dates: start: 20121229, end: 20130111
  5. LOXONIN [Suspect]
     Indication: HEAT THERAPY
  6. LOXONIN [Suspect]
     Indication: C-REACTIVE PROTEIN INCREASED
  7. BAKTAR [Concomitant]
     Indication: PROPHYLAXIS
     Dosage: SULFAMETHOXAZOLE 1200 MG, TRIMETHOPRIM 240 MG, TID
     Route: 048
     Dates: end: 20121125
  8. DIFLUCAN [Concomitant]
     Indication: PROPHYLAXIS
     Dosage: 100 MG, QD
     Route: 048
     Dates: end: 20121125

REACTIONS (8)
  - Pancytopenia [Not Recovered/Not Resolved]
  - Death [Fatal]
  - Nausea [Recovered/Resolved]
  - Pyrexia [Recovered/Resolved]
  - Pyrexia [Recovered/Resolved]
  - C-reactive protein increased [Not Recovered/Not Resolved]
  - Fibrin D dimer increased [Not Recovered/Not Resolved]
  - Fibrin degradation products increased [Not Recovered/Not Resolved]
